FAERS Safety Report 21143352 (Version 2)
Quarter: 2022Q3

REPORT INFORMATION
  Report Type: Spontaneous
  Country: DE (occurrence: DE)
  Receive Date: 20220728
  Receipt Date: 20220810
  Transmission Date: 20221026
  Serious: Yes (Hospitalization)
  Sender: FDA-Public Use
  Company Number: DE-TEVA-2022-DE-2058772

PATIENT
  Age: 63 Year
  Sex: Male

DRUGS (7)
  1. CLOZAPINE [Interacting]
     Active Substance: CLOZAPINE
     Indication: Schizophrenia
     Dosage: 850 MILLIGRAM DAILY;
     Route: 065
  2. CARIPRAZINE [Interacting]
     Active Substance: CARIPRAZINE
     Indication: Schizophrenia
     Dosage: 1.5 MILLIGRAM DAILY;
     Route: 065
  3. MIRTAZAPINE [Concomitant]
     Active Substance: MIRTAZAPINE
     Indication: Schizophrenia
     Dosage: 30 MILLIGRAM DAILY;
     Route: 065
  4. VALPROATE [Concomitant]
     Active Substance: VALPROIC ACID
     Indication: Schizophrenia
     Dosage: 2000 MILLIGRAM DAILY;
     Route: 065
  5. AMISULPRIDE [Concomitant]
     Active Substance: AMISULPRIDE
     Indication: Schizophrenia
     Dosage: 200 MILLIGRAM DAILY;
     Route: 065
  6. PIPAMPERONE [Concomitant]
     Active Substance: PIPAMPERONE
     Indication: Schizophrenia
     Dosage: 140 MILLIGRAM DAILY;
     Route: 065
  7. PIRENZEPINE [Concomitant]
     Active Substance: PIRENZEPINE
     Indication: Schizophrenia
     Dosage: 100 MILLIGRAM DAILY;
     Route: 065

REACTIONS (2)
  - Pleurothotonus [Recovered/Resolved]
  - Drug interaction [Recovered/Resolved]
